FAERS Safety Report 18109040 (Version 10)
Quarter: 2023Q2

REPORT INFORMATION
  Report Type: Spontaneous
  Country: US (occurrence: US)
  Receive Date: 20200804
  Receipt Date: 20230412
  Transmission Date: 20230722
  Serious: No
  Sender: FDA-Public Use
  Company Number: US-PFIZER INC-2020294518

PATIENT
  Age: 63 Year
  Sex: Female
  Weight: 98.413 kg

DRUGS (2)
  1. XALKORI [Suspect]
     Active Substance: CRIZOTINIB
     Indication: Lung carcinoma cell type unspecified stage IV
     Dosage: 250 MG, 2X/DAY (TWO TIMES A DAY) (2 PILLS A DAY)
     Route: 048
  2. IRON [Concomitant]
     Active Substance: IRON
     Indication: Blood iron decreased
     Dosage: UNK, 1X/DAY (65MG IRON/325MG FERROUS SULFATE)
     Route: 048
     Dates: start: 202008

REACTIONS (11)
  - Muscle tightness [Unknown]
  - Pain in extremity [Unknown]
  - Back disorder [Unknown]
  - Sciatic nerve injury [Unknown]
  - Weight decreased [Unknown]
  - Amnesia [Unknown]
  - Oedema [Unknown]
  - Synovial cyst [Unknown]
  - Lymphoedema [Unknown]
  - Muscle atrophy [Unknown]
  - General physical health deterioration [Unknown]

NARRATIVE: CASE EVENT DATE: 20200101
